FAERS Safety Report 7318088-7 (Version None)
Quarter: 2011Q1

REPORT INFORMATION
  Report Type: 
  Country: None (occurrence: None)
  Receive Date: 20110228
  Receipt Date: 20110216
  Transmission Date: 20110831
  Serious: Yes (Hospitalization)
  Sender: FDA-Public Use
  Company Number: US-BIOGENIDEC-2011BI002308

PATIENT
  Age: 60 Year
  Sex: Female
  Weight: 59 kg

DRUGS (1)
  1. AVONEX [Suspect]
     Indication: MULTIPLE SCLEROSIS
     Route: 030
     Dates: start: 20050101

REACTIONS (11)
  - NERVOUSNESS [None]
  - WEIGHT DECREASED [None]
  - BIOPSY BREAST NORMAL [None]
  - LIMB INJURY [None]
  - ROAD TRAFFIC ACCIDENT [None]
  - UTEROVAGINAL PROLAPSE [None]
  - INGROWING NAIL [None]
  - URINARY RETENTION POSTOPERATIVE [None]
  - NUCLEAR MAGNETIC RESONANCE IMAGING BREAST ABNORMAL [None]
  - DEPRESSED MOOD [None]
  - ANXIETY [None]
